FAERS Safety Report 15728978 (Version 2)
Quarter: 2019Q1

REPORT INFORMATION
  Report Type: Spontaneous
  Country: US (occurrence: US)
  Receive Date: 20181217
  Receipt Date: 20190122
  Transmission Date: 20190417
  Serious: Yes (Other)
  Sender: FDA-Public Use
  Company Number: US-PFIZER INC-2018188882

PATIENT
  Age: 77 Year
  Sex: Female
  Weight: 63.49 kg

DRUGS (1)
  1. ZYVOX [Suspect]
     Active Substance: LINEZOLID
     Indication: MYCOBACTERIAL INFECTION
     Dosage: 600 MG, DAILY [90 TABLETS AND 3 REFILLS]
     Route: 048

REACTIONS (3)
  - Product use issue [Unknown]
  - Malignant neoplasm of eye [Recovered/Resolved]
  - Product use in unapproved indication [Unknown]

NARRATIVE: CASE EVENT DATE: 2017
